FAERS Safety Report 8455464-3 (Version None)
Quarter: 2012Q2

REPORT INFORMATION
  Report Type: 
  Country: None (occurrence: None)
  Receive Date: 20120613
  Receipt Date: 20120604
  Transmission Date: 20120825
  Serious: Yes (Death, Hospitalization)
  Sender: FDA-Public Use
  Company Number: B0717181A

PATIENT
  Age: 40 Year
  Sex: Female

DRUGS (5)
  1. FERROUS SULFATE TAB [Concomitant]
  2. MIRTAZAPINE [Suspect]
     Indication: MAJOR DEPRESSION
  3. VENLAFAXINE HCL [Suspect]
     Indication: MAJOR DEPRESSION
  4. LAMOTRIGINE [Suspect]
     Indication: MAJOR DEPRESSION
  5. QUETIAPINE FUMARATE [Suspect]
     Indication: MAJOR DEPRESSION

REACTIONS (29)
  - FEBRILE NEUTROPENIA [None]
  - LUNG CONSOLIDATION [None]
  - CARDIAC ARREST [None]
  - AGRANULOCYTOSIS [None]
  - CELLULITIS [None]
  - CANDIDIASIS [None]
  - CONVULSION [None]
  - ASPIRATION TRACHEAL ABNORMAL [None]
  - CANDIDA TEST POSITIVE [None]
  - LUNG INFECTION [None]
  - RENAL FAILURE ACUTE [None]
  - ASPARTATE AMINOTRANSFERASE INCREASED [None]
  - MULTI-ORGAN DISORDER [None]
  - HAEMODIALYSIS [None]
  - PRODUCTIVE COUGH [None]
  - UNRESPONSIVE TO STIMULI [None]
  - HAEMOGLOBIN DECREASED [None]
  - LUNG NEOPLASM [None]
  - ALANINE AMINOTRANSFERASE INCREASED [None]
  - EYE DISORDER [None]
  - GENERAL PHYSICAL HEALTH DETERIORATION [None]
  - CHILLS [None]
  - BLOOD CULTURE POSITIVE [None]
  - ENTEROCOCCUS TEST POSITIVE [None]
  - BILIRUBIN CONJUGATED INCREASED [None]
  - BLOOD BILIRUBIN INCREASED [None]
  - PHARYNGITIS [None]
  - ASPERGILLUS TEST POSITIVE [None]
  - SEPTIC SHOCK [None]
